FAERS Safety Report 23179084 (Version 1)
Quarter: 2023Q4

REPORT INFORMATION
  Report Type: Spontaneous
  Country: US (occurrence: US)
  Receive Date: 20231113
  Receipt Date: 20231113
  Transmission Date: 20240110
  Serious: No
  Sender: FDA-Public Use
  Company Number: US-BEH-2023165194

PATIENT
  Sex: Female

DRUGS (8)
  1. HIZENTRA [Suspect]
     Active Substance: HUMAN IMMUNOGLOBULIN G
     Indication: Arthralgia
     Dosage: 10 GRAM, QW
     Route: 058
  2. ALBUTEROL SULFATE [Concomitant]
     Active Substance: ALBUTEROL SULFATE
  3. ASPIRIN\CAFFEINE\SALICYLAMIDE [Concomitant]
     Active Substance: ASPIRIN\CAFFEINE\SALICYLAMIDE
  4. HYDROCHLOROTHIAZIDE [Concomitant]
     Active Substance: HYDROCHLOROTHIAZIDE
  5. LOSARTAN POTASSIUM [Concomitant]
     Active Substance: LOSARTAN POTASSIUM
  6. ROSUVASTATIN [Concomitant]
     Active Substance: ROSUVASTATIN
  7. SYMBICORT [Concomitant]
     Active Substance: BUDESONIDE\FORMOTEROL FUMARATE DIHYDRATE
  8. ZYRTEC [Concomitant]
     Active Substance: CETIRIZINE HYDROCHLORIDE

REACTIONS (5)
  - Abdominal distension [Recovered/Resolved]
  - Weight increased [Recovered/Resolved]
  - Sinusitis [Recovered/Resolved]
  - No adverse event [Unknown]
  - Off label use [Unknown]

NARRATIVE: CASE EVENT DATE: 20230101
